FAERS Safety Report 4743859-0 (Version None)
Quarter: 2005Q3

REPORT INFORMATION
  Report Type: 
  Country: None (occurrence: None)
  Receive Date: 20050812
  Receipt Date: 20050511
  Transmission Date: 20060218
  Serious: Yes (Hospitalization)
  Sender: FDA-Public Use
  Company Number: US-MERCK-0505USA01506

PATIENT
  Age: 53 Year
  Sex: Female
  Weight: 77 kg

DRUGS (18)
  1. VIOXX [Suspect]
     Indication: SHOULDER PAIN
     Route: 048
     Dates: start: 20011130, end: 20040913
  2. VIOXX [Suspect]
     Indication: BACK PAIN
     Route: 048
     Dates: start: 20011130, end: 20040913
  3. NIFEREX [Concomitant]
     Route: 065
  4. DIOVAN [Concomitant]
     Indication: HYPERTENSION
     Route: 065
  5. AVELOX [Concomitant]
     Route: 065
  6. METHYLPREDNISOLONE [Concomitant]
     Route: 065
  7. TEQUIN [Concomitant]
     Route: 065
  8. CHROMAGEN CAPSULES [Concomitant]
     Route: 065
  9. PRINIVIL [Concomitant]
     Indication: HYPERTENSION
     Route: 065
  10. MECLIZINE [Concomitant]
     Route: 065
  11. FOSAMAX [Concomitant]
     Route: 065
  12. XANAX [Concomitant]
     Indication: GENERALISED ANXIETY DISORDER
     Route: 065
     Dates: start: 20020923
  13. LIPITOR [Concomitant]
     Indication: BLOOD CHOLESTEROL INCREASED
     Route: 065
     Dates: start: 20040601, end: 20041001
  14. LESCOL [Concomitant]
     Route: 065
     Dates: start: 20041101
  15. PRAVACHOL [Concomitant]
     Route: 065
     Dates: start: 20020422, end: 20040501
  16. PRAVACHOL [Concomitant]
     Route: 065
     Dates: start: 19990723, end: 20020204
  17. PREMARIN [Concomitant]
     Indication: HORMONE REPLACEMENT THERAPY
     Route: 065
     Dates: start: 19990723, end: 20020204
  18. WELLBUTRIN [Concomitant]
     Indication: GENERALISED ANXIETY DISORDER
     Route: 065
     Dates: start: 20031201

REACTIONS (2)
  - CAROTID ARTERY STENOSIS [None]
  - CEREBROVASCULAR ACCIDENT [None]
